FAERS Safety Report 6988876-5 (Version None)
Quarter: 2010Q3

REPORT INFORMATION
  Report Type: 
  Country: None (occurrence: None)
  Receive Date: 20100830
  Receipt Date: 20100506
  Transmission Date: 20110219
  Serious: No
  Sender: FDA-Public Use
  Company Number: 2010058072

PATIENT
  Sex: Female

DRUGS (2)
  1. TOVIAZ [Suspect]
     Dosage: 8 MG
  2. OXYBUTYNIN CHLORIDE [Suspect]
     Dosage: 5 MG

REACTIONS (1)
  - DRY MOUTH [None]
